FAERS Safety Report 8936954 (Version 2)
Quarter: 2013Q1

REPORT INFORMATION
  Report Type: Spontaneous
  Country: US (occurrence: US)
  Receive Date: 20121130
  Receipt Date: 20130111
  Transmission Date: 20140127
  Serious: No
  Sender: FDA-Public Use
  Company Number: US-TEVA-369999USA

PATIENT
  Sex: Male
  Weight: 83.99 kg

DRUGS (4)
  1. QNASL [Suspect]
     Indication: RHINITIS ALLERGIC
     Dosage: 320 MCG QD
     Route: 045
     Dates: start: 201204
  2. QNASL [Suspect]
     Indication: SEASONAL ALLERGY
  3. IPRATROPIUM BROMIDE [Concomitant]
     Indication: RHINITIS ALLERGIC
     Route: 055
  4. ASTEPRO [Concomitant]
     Indication: RHINITIS ALLERGIC
     Route: 055

REACTIONS (2)
  - Feeling cold [Recovering/Resolving]
  - Sneezing [Recovering/Resolving]
